FAERS Safety Report 14510420 (Version 1)
Quarter: 2018Q1

REPORT INFORMATION
  Report Type: Report from Study
  Country: None (occurrence: CA)
  Receive Date: 20180209
  Receipt Date: 20180209
  Transmission Date: 20180509
  Serious: Yes (Other)
  Sender: FDA-Public Use
  Company Number: CA-BIOVITRUM-2018CA0027

PATIENT
  Sex: Female

DRUGS (3)
  1. TYLENOL [Concomitant]
     Active Substance: ACETAMINOPHEN
     Indication: PERICARDITIS
  2. ADVIL [Concomitant]
     Active Substance: IBUPROFEN
     Indication: INFLAMMATION
  3. KINERET [Suspect]
     Active Substance: ANAKINRA
     Indication: PERICARDITIS
     Route: 058
     Dates: start: 20170916, end: 201801

REACTIONS (9)
  - Lymphoma [Unknown]
  - Vomiting [Unknown]
  - Oropharyngeal pain [Unknown]
  - Off label use [Unknown]
  - Dyspnoea [Unknown]
  - Dysphagia [Unknown]
  - Aphonia [Unknown]
  - Constipation [Unknown]
  - Chest pain [Unknown]
